FAERS Safety Report 9030795 (Version 2)
Quarter: 2013Q1

REPORT INFORMATION
  Report Type: Report from Study
  Country: CA (occurrence: CA)
  Receive Date: 20130123
  Receipt Date: 20130215
  Transmission Date: 20140127
  Serious: Yes (Hospitalization, Other)
  Sender: FDA-Public Use
  Company Number: CA-ROCHE-1180987

PATIENT
  Sex: Male

DRUGS (7)
  1. ZELBORAF [Suspect]
     Indication: METASTATIC MALIGNANT MELANOMA
     Route: 048
     Dates: start: 201209
  2. OXYCONTIN [Concomitant]
  3. PANTOPRAZOLE [Concomitant]
  4. DEXAMETHASONE [Concomitant]
  5. GABAPENTIN [Concomitant]
  6. SOFLAX (CANADA) [Concomitant]
  7. OXYCOCET [Concomitant]

REACTIONS (2)
  - Pain [Unknown]
  - Disease progression [Unknown]
